FAERS Safety Report 9295702 (Version 1)
Quarter: 2013Q2

REPORT INFORMATION
  Report Type: Spontaneous
  Country: US (occurrence: US)
  Receive Date: 20130517
  Receipt Date: 20130517
  Transmission Date: 20140414
  Serious: Yes (Hospitalization)
  Sender: FDA-Public Use
  Company Number: US-BAYER-2013-060311

PATIENT
  Age: 38 Year
  Sex: Female
  Weight: 57.6 kg

DRUGS (14)
  1. YAZ [Suspect]
     Dosage: UNK
  2. YASMIN [Suspect]
  3. OCELLA [Suspect]
  4. ZOLOFT [Concomitant]
  5. RHINOCORT AQUA [Concomitant]
     Dosage: 32 ?G, UNK
  6. SUMATRIPTAN SUCCINATE [Concomitant]
     Dosage: 100 MG, UNK
     Route: 048
  7. ALLEGRA [Concomitant]
     Route: 048
  8. SERTRALINE [Concomitant]
     Dosage: 50 MG, UNK
     Route: 048
  9. CLINDESSE [Concomitant]
     Dosage: 2 UNK, UNK
     Route: 061
  10. MULTIVITAMINS [Concomitant]
     Route: 048
  11. IMITREX [Concomitant]
  12. DARVOCET-N [Concomitant]
  13. MOTRIN [Concomitant]
  14. BENICAR [Concomitant]

REACTIONS (1)
  - Thrombophlebitis superficial [None]
